FAERS Safety Report 7741090-8 (Version None)
Quarter: 2011Q3

REPORT INFORMATION
  Report Type: 
  Country: None (occurrence: None)
  Receive Date: 20110909
  Receipt Date: 20110902
  Transmission Date: 20111222
  Serious: Yes (Life-Threatening, Hospitalization, Other)
  Sender: FDA-Public Use
  Company Number: GB-BRISTOL-MYERS SQUIBB COMPANY-16001778

PATIENT
  Age: 77 Year
  Sex: Male
  Weight: 87 kg

DRUGS (6)
  1. SIMVASTATIN [Concomitant]
     Route: 048
     Dates: start: 20070101
  2. RANITIDINE [Concomitant]
     Route: 048
  3. RAMIPRIL [Concomitant]
     Route: 048
     Dates: start: 20110101
  4. SPRYCEL [Suspect]
     Indication: CHRONIC MYELOID LEUKAEMIA
     Dosage: DISCONTINUED ON 30AUG2011
     Route: 048
     Dates: start: 20110805
  5. ACETYLSALICYLIC ACID SRT [Suspect]
     Indication: TRANSIENT ISCHAEMIC ATTACK
     Route: 048
     Dates: start: 20110816
  6. ALLOPURINOL [Concomitant]
     Dosage: JUL11
     Route: 048
     Dates: start: 20110101

REACTIONS (7)
  - CARDIAC TAMPONADE [None]
  - GASTROINTESTINAL HAEMORRHAGE [None]
  - MULTI-ORGAN FAILURE [None]
  - PERICARDITIS [None]
  - PERICARDIAL EFFUSION [None]
  - PLEURAL EFFUSION [None]
  - SPLENIC INFARCTION [None]
